FAERS Safety Report 8168040-7 (Version None)
Quarter: 2012Q1

REPORT INFORMATION
  Report Type: 
  Country: None (occurrence: None)
  Receive Date: 20120227
  Receipt Date: 20120220
  Transmission Date: 20120608
  Serious: Yes (Other)
  Sender: FDA-Public Use
  Company Number: PHEH2012US004183

PATIENT
  Sex: Male

DRUGS (4)
  1. BENICAR [Concomitant]
  2. TEGRETOL [Suspect]
  3. SIMVASTATIN [Concomitant]
  4. TRILEPTAL [Suspect]

REACTIONS (1)
  - CONVULSION [None]
